FAERS Safety Report 9155310 (Version 1)
Quarter: 2013Q1

REPORT INFORMATION
  Report Type: Spontaneous
  Country: TR (occurrence: TR)
  Receive Date: 20130311
  Receipt Date: 20130311
  Transmission Date: 20140127
  Serious: Yes (Death, Life-Threatening)
  Sender: FDA-Public Use
  Company Number: TR-ASTRAZENECA-2013SE15487

PATIENT
  Age: 78 Year
  Sex: Female

DRUGS (2)
  1. MEROPENEM [Suspect]
     Indication: ANTIBIOTIC THERAPY
     Route: 042
  2. PIPERACILLIN TAZOBACTAM [Suspect]
     Indication: ANTIBIOTIC THERAPY
     Route: 042

REACTIONS (4)
  - Pancytopenia [Fatal]
  - Sepsis [Fatal]
  - Purpura [Unknown]
  - Pruritus [Unknown]
